FAERS Safety Report 19970656 (Version 2)
Quarter: 2021Q4

REPORT INFORMATION
  Report Type: Report from Study
  Country: US (occurrence: US)
  Receive Date: 20211019
  Receipt Date: 20211021
  Transmission Date: 20220303
  Serious: Yes (Death, Hospitalization)
  Sender: FDA-Public Use
  Company Number: US-ALLERGAN-2134268US

PATIENT
  Sex: Male

DRUGS (6)
  1. DONEPEZIL HYDROCHLORIDE\MEMANTINE HYDROCHLORIDE [Suspect]
     Active Substance: DONEPEZIL HYDROCHLORIDE\MEMANTINE HYDROCHLORIDE
     Indication: Dementia Alzheimer^s type
     Dosage: 28MG-10 MG PER CAPSULE ONCE A DAY
     Route: 048
     Dates: start: 201909, end: 202109
  2. LEVOCETIRIZINE [Concomitant]
     Active Substance: LEVOCETIRIZINE
  3. VITAMINS NOS [Concomitant]
     Active Substance: VITAMINS
  4. METFORMIN [Concomitant]
     Active Substance: METFORMIN HYDROCHLORIDE
  5. ATORVASTATIN CALCIUM [Concomitant]
     Active Substance: ATORVASTATIN CALCIUM
  6. ESCITALOPRAM [Concomitant]
     Active Substance: ESCITALOPRAM OXALATE

REACTIONS (5)
  - Dyspnoea [Fatal]
  - Dysphagia [Fatal]
  - Dementia Alzheimer^s type [Fatal]
  - Pneumonia [Fatal]
  - Aspiration [Fatal]
